FAERS Safety Report 7967573-3 (Version None)
Quarter: 2011Q4

REPORT INFORMATION
  Report Type: 
  Country: None (occurrence: None)
  Receive Date: 20111209
  Receipt Date: 20111129
  Transmission Date: 20120403
  Serious: Yes (Hospitalization, Other)
  Sender: FDA-Public Use
  Company Number: US-JNJFOC-20111001145

PATIENT
  Sex: Male
  Weight: 48.08 kg

DRUGS (16)
  1. ZYTIGA [Suspect]
     Route: 048
     Dates: start: 20110701, end: 20110701
  2. PREDNISONE TAB [Suspect]
     Route: 048
     Dates: start: 20110701
  3. PREDNISONE TAB [Suspect]
     Route: 048
     Dates: start: 20110701
  4. LASIX [Concomitant]
     Route: 048
     Dates: start: 19910101
  5. LASIX [Concomitant]
     Indication: FLUID RETENTION
     Route: 048
     Dates: start: 20110723
  6. LASIX [Concomitant]
     Route: 048
     Dates: start: 19910101
  7. SPIRONOLACTONE [Concomitant]
     Indication: FLUID RETENTION
     Route: 048
     Dates: start: 20110730
  8. TOPROL-XL [Concomitant]
     Indication: BLOOD PRESSURE
     Route: 048
  9. TRAZODONE HCL [Concomitant]
     Indication: NERVOUSNESS
     Route: 065
  10. TRAZODONE HCL [Concomitant]
     Indication: FEELING JITTERY
     Route: 065
  11. ZYTIGA [Suspect]
     Route: 048
     Dates: start: 20110801, end: 20110901
  12. ZYTIGA [Suspect]
     Indication: PROSTATE CANCER METASTATIC
     Route: 048
     Dates: start: 20110901
  13. TOPROL-XL [Concomitant]
     Route: 048
     Dates: start: 19910101
  14. LASIX [Concomitant]
     Indication: OEDEMA
     Route: 048
     Dates: start: 20110723
  15. PREDNISONE TAB [Suspect]
     Indication: PROSTATE CANCER METASTATIC
     Route: 048
     Dates: start: 20110801
  16. SPIRONOLACTONE [Concomitant]
     Route: 048
     Dates: start: 19910101

REACTIONS (26)
  - FLUID RETENTION [None]
  - CARDIAC FAILURE [None]
  - NERVOUSNESS [None]
  - RASH [None]
  - WEIGHT DECREASED [None]
  - MUSCLE TWITCHING [None]
  - ASTHENIA [None]
  - FEELING ABNORMAL [None]
  - HAEMOGLOBIN DECREASED [None]
  - FATIGUE [None]
  - SKIN ATROPHY [None]
  - DYSPHONIA [None]
  - HYPERSOMNIA [None]
  - PRURITUS [None]
  - FEAR [None]
  - DRUG INTOLERANCE [None]
  - WEIGHT INCREASED [None]
  - CARDIAC DISORDER [None]
  - CONVERSION DISORDER [None]
  - DRUG INEFFECTIVE [None]
  - PROSTATIC SPECIFIC ANTIGEN INCREASED [None]
  - LABORATORY TEST ABNORMAL [None]
  - DEPRESSED MOOD [None]
  - RESTLESS LEGS SYNDROME [None]
  - FEELING JITTERY [None]
  - SOMNOLENCE [None]
